FAERS Safety Report 6382817-X (Version None)
Quarter: 2009Q3

REPORT INFORMATION
  Report Type: 
  Country: None (occurrence: None)
  Receive Date: 20090930
  Receipt Date: 20090921
  Transmission Date: 20100115
  Serious: Yes (Hospitalization, Other)
  Sender: FDA-Public Use
  Company Number: FI-JNJFOC-20040604969

PATIENT
  Age: 37 Year
  Sex: Male
  Weight: 99 kg

DRUGS (2)
  1. PARACETAMOL [Suspect]
     Route: 048
  2. PARACETAMOL [Suspect]
     Indication: SUICIDE ATTEMPT
     Route: 048

REACTIONS (7)
  - BLOOD BILIRUBIN INCREASED [None]
  - BLOOD THROMBOPLASTIN DECREASED [None]
  - COAGULATION FACTOR V LEVEL DECREASED [None]
  - ENCEPHALOPATHY [None]
  - OVERDOSE [None]
  - PLATELET COUNT DECREASED [None]
  - TRANSAMINASES INCREASED [None]
